FAERS Safety Report 9433639 (Version 2)
Quarter: 2013Q3

REPORT INFORMATION
  Report Type: Report from Study
  Country: DE (occurrence: DE)
  Receive Date: 20130731
  Receipt Date: 20130829
  Transmission Date: 20140515
  Serious: Yes (Hospitalization)
  Sender: FDA-Public Use
  Company Number: DE-ROCHE-1254212

PATIENT
  Age: 66 Year
  Sex: Male
  Weight: 78 kg

DRUGS (3)
  1. RIBAVIRIN [Suspect]
     Indication: CHRONIC HEPATITIS C
     Route: 048
     Dates: start: 20130417
  2. BI 207127 [Suspect]
     Indication: CHRONIC HEPATITIS C
     Route: 048
     Dates: start: 20130417
  3. BI 201335 [Suspect]
     Indication: CHRONIC HEPATITIS C
     Route: 048
     Dates: start: 20130417

REACTIONS (1)
  - Thrombosis [Recovered/Resolved]
